FAERS Safety Report 5954020-6 (Version None)
Quarter: 2008Q4

REPORT INFORMATION
  Report Type: 
  Country: None (occurrence: None)
  Receive Date: 20081114
  Receipt Date: 20081104
  Transmission Date: 20090506
  Serious: Yes (Hospitalization)
  Sender: FDA-Public Use
  Company Number: JP-ABBOTT-08P-087-0462828-00

PATIENT
  Age: 24 Month
  Sex: Female

DRUGS (2)
  1. CEFDINIR [Suspect]
     Indication: BACTERIAL INFECTION
     Route: 048
     Dates: start: 20080623, end: 20080625
  2. KETOTIFEN FUMARATE [Concomitant]
     Indication: DRUG USE FOR UNKNOWN INDICATION
     Route: 048
     Dates: start: 20080623, end: 20080623

REACTIONS (1)
  - TUBULOINTERSTITIAL NEPHRITIS [None]
